FAERS Safety Report 11845605 (Version 1)
Quarter: 2015Q4

REPORT INFORMATION
  Report Type: Other
  Country: GB (occurrence: GB)
  Receive Date: 20151217
  Receipt Date: 20151217
  Transmission Date: 20160305
  Serious: Yes (Other)
  Sender: FDA-Public Use
  Company Number: GB-MYLANLABS-2015M1043839

PATIENT

DRUGS (6)
  1. EPILIM [Suspect]
     Active Substance: VALPROATE SODIUM
     Indication: TEMPORAL LOBE EPILEPSY
     Dosage: UNK (UNKNOWN DOSE AND FREQUENCY)
  2. LAMOTRIGINE. [Suspect]
     Active Substance: LAMOTRIGINE
     Indication: TEMPORAL LOBE EPILEPSY
     Dosage: UNK (UNKNOWN DOSE AND FREQUENCY)
  3. KEPPRA [Suspect]
     Active Substance: LEVETIRACETAM
     Indication: TEMPORAL LOBE EPILEPSY
     Dosage: UNK (UNKNOWN DOSE AND FREQUENCY)
  4. TEGRETOL [Concomitant]
     Active Substance: CARBAMAZEPINE
     Indication: TEMPORAL LOBE EPILEPSY
     Dosage: PROLONG RELEASE
  5. CLOBAZAM [Suspect]
     Active Substance: CLOBAZAM
     Indication: TEMPORAL LOBE EPILEPSY
     Dosage: UNKNOWN DOSE AND FREQUENCY
  6. ZONISAMIDE. [Concomitant]
     Active Substance: ZONISAMIDE
     Indication: TEMPORAL LOBE EPILEPSY
     Dosage: UNK

REACTIONS (2)
  - Brain lobectomy [Unknown]
  - Hypersensitivity [Unknown]
